FAERS Safety Report 18487294 (Version 1)
Quarter: 2020Q4

REPORT INFORMATION
  Report Type: Spontaneous
  Country: US (occurrence: US)
  Receive Date: 20201110
  Receipt Date: 20201110
  Transmission Date: 20210114
  Serious: Yes (Other)
  Sender: FDA-Public Use
  Company Number: US-PROCTER_AND_GAMBLE-GS20124359

PATIENT

DRUGS (2)
  1. CREST 3D WHITE LUXE [Suspect]
     Active Substance: POTASSIUM NITRATE\SODIUM FLUORIDE
  2. CREST 3D WHITE [Suspect]
     Active Substance: SODIUM FLUORIDE
     Route: 002

REACTIONS (3)
  - Anaphylactic reaction [Recovering/Resolving]
  - Dyspnoea [Recovering/Resolving]
  - Illness [Recovering/Resolving]
